FAERS Safety Report 4559299-3 (Version None)
Quarter: 2005Q1

REPORT INFORMATION
  Report Type: 
  Country: None (occurrence: None)
  Receive Date: 20050124
  Receipt Date: 20050112
  Transmission Date: 20050727
  Serious: Yes (Death, Hospitalization)
  Sender: FDA-Public Use
  Company Number: US-JNJFOC-20041004712

PATIENT
  Sex: Male
  Weight: 90 kg

DRUGS (1)
  1. DURAGESIC [Suspect]
     Indication: MUSCULOSKELETAL PAIN
     Route: 062
     Dates: start: 20040112

REACTIONS (3)
  - DEATH [None]
  - OFF LABEL USE [None]
  - OVERDOSE [None]
